FAERS Safety Report 14285573 (Version 2)
Quarter: 2017Q4

REPORT INFORMATION
  Report Type: Report from Study
  Country: None (occurrence: US)
  Receive Date: 20171214
  Receipt Date: 20171227
  Transmission Date: 20180321
  Serious: Yes (Hospitalization, Other)
  Sender: FDA-Public Use
  Company Number: US-ABBVIE-17K-163-2188174-00

PATIENT
  Age: 44 Year
  Sex: Male
  Weight: 83.08 kg

DRUGS (4)
  1. HUMIRA [Suspect]
     Active Substance: ADALIMUMAB
     Indication: CROHN^S DISEASE
     Route: 058
     Dates: start: 201506, end: 20171202
  2. MERCAPTOPURINE. [Concomitant]
     Active Substance: MERCAPTOPURINE
     Indication: CROHN^S DISEASE
     Dates: end: 201712
  3. IRON PILLS [Concomitant]
     Active Substance: IRON
     Indication: ANAEMIA
  4. HUMIRA [Suspect]
     Active Substance: ADALIMUMAB
     Route: 058
     Dates: start: 20171223

REACTIONS (6)
  - Pulmonary mass [Recovering/Resolving]
  - Blood iron decreased [Recovering/Resolving]
  - Heart rate increased [Unknown]
  - Bronchopulmonary disease [Recovering/Resolving]
  - Sinusitis [Unknown]
  - Mycotic allergy [Recovering/Resolving]

NARRATIVE: CASE EVENT DATE: 2017
